FAERS Safety Report 8445026-6 (Version None)
Quarter: 2012Q2

REPORT INFORMATION
  Report Type: 
  Country: None (occurrence: None)
  Receive Date: 20120618
  Receipt Date: 20120605
  Transmission Date: 20120825
  Serious: Yes (Hospitalization, Other)
  Sender: FDA-Public Use
  Company Number: BR-ROCHE-1075312

PATIENT
  Sex: Male
  Weight: 56 kg

DRUGS (5)
  1. AMITRIPTYLINE HYDROCHLORIDE [Concomitant]
  2. ISOTRETINOIN [Suspect]
     Indication: ACNE
     Route: 048
     Dates: start: 20110701
  3. ISOTRETINOIN [Suspect]
     Dosage: DOSE REDUCED
     Dates: start: 20110903, end: 20110910
  4. DIPYRONE TAB [Concomitant]
     Route: 042
  5. TRAMA [Concomitant]

REACTIONS (23)
  - NECK PAIN [None]
  - DYSSTASIA [None]
  - C-REACTIVE PROTEIN ABNORMAL [None]
  - PAIN IN EXTREMITY [None]
  - ABASIA [None]
  - SINUSITIS [None]
  - GUILLAIN-BARRE SYNDROME [None]
  - SPINAL PAIN [None]
  - ACNE [None]
  - MASS [None]
  - VIRAL INFECTION [None]
  - SYNCOPE [None]
  - ARTHRALGIA [None]
  - HEADACHE [None]
  - SKIN INFECTION [None]
  - WEIGHT DECREASED [None]
  - ILL-DEFINED DISORDER [None]
  - KELOID SCAR [None]
  - GAIT DISTURBANCE [None]
  - BLOOD CREATINE PHOSPHOKINASE ABNORMAL [None]
  - FIBROMYALGIA [None]
  - MUSCLE ATROPHY [None]
  - NERVOUSNESS [None]
